FAERS Safety Report 15197204 (Version 9)
Quarter: 2019Q1

REPORT INFORMATION
  Report Type: Report from Study
  Country: US (occurrence: US)
  Receive Date: 20180725
  Receipt Date: 20190227
  Transmission Date: 20190417
  Serious: Yes (Life-Threatening, Hospitalization)
  Sender: FDA-Public Use
  Company Number: US-ACTELION-A-US2018-170264

PATIENT
  Age: 47 Year
  Sex: Female
  Weight: 68.03 kg

DRUGS (6)
  1. SILDENAFIL. [Suspect]
     Active Substance: SILDENAFIL
     Indication: PULMONARY ARTERIAL HYPERTENSION
     Dosage: 20 MG, UNK
     Route: 065
  2. SILDENAFIL. [Suspect]
     Active Substance: SILDENAFIL
     Dosage: 60 MG, TID
     Route: 048
     Dates: start: 2014
  3. REMODULIN [Suspect]
     Active Substance: TREPROSTINIL
     Indication: PULMONARY ARTERIAL HYPERTENSION
     Dosage: 20 NG, UNK
     Route: 065
     Dates: start: 2017
  4. OPSUMIT [Suspect]
     Active Substance: MACITENTAN
     Indication: PULMONARY ARTERIAL HYPERTENSION
     Dosage: 10 MG, QD
     Route: 048
     Dates: start: 20141017
  5. UPTRAVI [Suspect]
     Active Substance: SELEXIPAG
     Indication: PULMONARY ARTERIAL HYPERTENSION
     Dosage: 1600 MCG, BID
     Route: 048
     Dates: start: 201606, end: 201808
  6. REMODULIN [Suspect]
     Active Substance: TREPROSTINIL
     Dosage: 30 NG/KG, PER MIN
     Route: 058
     Dates: start: 20180813

REACTIONS (23)
  - Fluid overload [Unknown]
  - Peripheral swelling [Unknown]
  - Right ventricular failure [Unknown]
  - Lung disorder [Unknown]
  - Product dose omission [Unknown]
  - Oxygen consumption increased [Unknown]
  - Asthenia [Unknown]
  - Choking sensation [Unknown]
  - General physical health deterioration [Unknown]
  - Skin infection [Unknown]
  - Malaise [Unknown]
  - Ascites [Unknown]
  - Cough [Unknown]
  - Disease progression [Unknown]
  - Vomiting [Unknown]
  - Anxiety [Unknown]
  - Bedridden [Unknown]
  - Nausea [Unknown]
  - Cellulitis [Recovered/Resolved]
  - Dyspnoea [Unknown]
  - Cardiac disorder [Unknown]
  - Constipation [Unknown]
  - Abdominal distension [Unknown]

NARRATIVE: CASE EVENT DATE: 2014
